FAERS Safety Report 24448553 (Version 1)
Quarter: 2024Q4

REPORT INFORMATION
  Report Type: Spontaneous
  Country: CH (occurrence: CH)
  Receive Date: 20241017
  Receipt Date: 20241017
  Transmission Date: 20250115
  Serious: Yes (Other)
  Sender: ACCORD
  Company Number: CH-MLMSERVICE-20241001-PI200468-00082-1

PATIENT
  Age: 36 Year
  Sex: Male

DRUGS (2)
  1. GEMCITABINE [Suspect]
     Active Substance: GEMCITABINE
     Indication: Bladder transitional cell carcinoma stage IV
  2. CARBOPLATIN [Suspect]
     Active Substance: CARBOPLATIN
     Indication: Bladder transitional cell carcinoma stage IV

REACTIONS (7)
  - Fatigue [Unknown]
  - Vomiting [Unknown]
  - Decreased appetite [Unknown]
  - Leukopenia [Recovered/Resolved]
  - Thrombocytopenia [Recovered/Resolved]
  - Nausea [Unknown]
  - Off label use [Unknown]
